FAERS Safety Report 5719720-1 (Version None)
Quarter: 2008Q2

REPORT INFORMATION
  Report Type: 
  Country: None (occurrence: None)
  Receive Date: 20080428
  Receipt Date: 20070730
  Transmission Date: 20081010
  Serious: Yes (Disabling, Other)
  Sender: FDA-Public Use
  Company Number: A0652667A

PATIENT
  Age: 37 Year
  Sex: Female
  Weight: 64.5 kg

DRUGS (3)
  1. ZOFRAN [Suspect]
     Indication: HYPEREMESIS GRAVIDARUM
     Dosage: 1.33MG CONTINUOUS
     Route: 042
     Dates: start: 20070522, end: 20070525
  2. ZOFRAN [Suspect]
     Route: 065
     Dates: start: 20070101
  3. TPN [Concomitant]
     Indication: NUTRITIONAL SUPPORT
     Route: 042
     Dates: start: 20070522, end: 20070618

REACTIONS (2)
  - DRUG EXPOSURE DURING PREGNANCY [None]
  - DRUG INEFFECTIVE [None]
